FAERS Safety Report 13248439 (Version 1)
Quarter: 2017Q1

REPORT INFORMATION
  Report Type: Spontaneous
  Country: US (occurrence: US)
  Receive Date: 20170218
  Receipt Date: 20170218
  Transmission Date: 20170428
  Serious: No
  Sender: FDA-Public Use
  Company Number: US-ALLERGAN-1656433US

PATIENT
  Sex: Female
  Weight: 78.5 kg

DRUGS (4)
  1. FLUOROMETHOLONE, 0.1% [Concomitant]
     Active Substance: FLUOROMETHOLONE
     Indication: PRODUCT USED FOR UNKNOWN INDICATION
  2. RESTASIS [Suspect]
     Active Substance: CYCLOSPORINE
     Indication: DRY EYE
     Dosage: 2 GTT, BID
     Route: 047
     Dates: start: 20151210
  3. ASA [Concomitant]
     Active Substance: ASPIRIN
     Indication: PRODUCT USED FOR UNKNOWN INDICATION
  4. REFRESH TEARS [Suspect]
     Active Substance: CARBOXYMETHYLCELLULOSE SODIUM
     Indication: PRODUCT USED FOR UNKNOWN INDICATION

REACTIONS (8)
  - Conjunctivitis [Unknown]
  - Foreign body sensation in eyes [Unknown]
  - Visual impairment [Unknown]
  - Eye pain [Not Recovered/Not Resolved]
  - Eye irritation [Unknown]
  - Reaction to preservatives [Unknown]
  - Vision blurred [Unknown]
  - Expired product administered [Unknown]
